FAERS Safety Report 8115258-5 (Version None)
Quarter: 2012Q1

REPORT INFORMATION
  Report Type: 
  Country: None (occurrence: None)
  Receive Date: 20120201
  Receipt Date: 20120123
  Transmission Date: 20120608
  Serious: Yes (Hospitalization)
  Sender: FDA-Public Use
  Company Number: 2012MA001188

PATIENT
  Age: 62 Year
  Sex: Female

DRUGS (2)
  1. FEVERALL [Suspect]
     Indication: ARTHRALGIA
     Dosage: 5 GM;
  2. WARFARIN SODIUM [Suspect]
     Dosage: 4.7 MG; QD;

REACTIONS (3)
  - INTERNATIONAL NORMALISED RATIO INCREASED [None]
  - DRUG INTERACTION [None]
  - RETROPERITONEAL HAEMATOMA [None]
